FAERS Safety Report 24690792 (Version 1)
Quarter: 2024Q4

REPORT INFORMATION
  Report Type: Spontaneous
  Country: US (occurrence: US)
  Receive Date: 20241203
  Receipt Date: 20241203
  Transmission Date: 20250114
  Serious: No
  Sender: PAREXEL
  Company Number: US-NOVEN PHARMACEUTICALS, INC.-2024-NOV-US000010

PATIENT
  Age: 71 Year
  Sex: Female

DRUGS (3)
  1. ESTRADIOL [Suspect]
     Active Substance: ESTRADIOL
     Indication: Menopause
     Dosage: 0.025 MG, ONCE WEEKLY
     Route: 062
     Dates: start: 2023
  2. ESTRADIOL [Suspect]
     Active Substance: ESTRADIOL
     Dosage: 0.025 MG, TWICE WEEKLY
     Route: 062
  3. PROGESTERONE [Suspect]
     Active Substance: PROGESTERONE
     Indication: Vulvovaginal dryness
     Dosage: 100 MG, DAILY
     Route: 048

REACTIONS (2)
  - Vaginal haemorrhage [Recovered/Resolved]
  - Off label use [Not Recovered/Not Resolved]

NARRATIVE: CASE EVENT DATE: 20230101
